FAERS Safety Report 8795624 (Version 3)
Quarter: 2013Q1

REPORT INFORMATION
  Report Type: Report from Study
  Country: US (occurrence: US)
  Receive Date: 20120919
  Receipt Date: 20130226
  Transmission Date: 20140127
  Serious: Yes (Other)
  Sender: FDA-Public Use
  Company Number: US-ABBOTT-12P-163-0968151-00

PATIENT
  Age: 57 Year
  Sex: Female
  Weight: 56.75 kg

DRUGS (18)
  1. HUMIRA [Suspect]
     Indication: RHEUMATOID ARTHRITIS
     Route: 058
  2. HUMIRA [Suspect]
     Route: 058
  3. VITAMIN B12 [Suspect]
     Indication: PRODUCT USED FOR UNKNOWN INDICATION
  4. SLOW FE [Concomitant]
     Indication: PRODUCT USED FOR UNKNOWN INDICATION
     Dates: start: 20120730
  5. CLARITIN [Concomitant]
     Indication: HYPERSENSITIVITY
     Dosage: AS NEEDED
  6. RECLAST [Concomitant]
     Indication: PRODUCT USED FOR UNKNOWN INDICATION
     Dosage: 5 MG/100 ML
     Dates: start: 20110729, end: 20110729
  7. ARTHROTEC [Concomitant]
     Indication: PRODUCT USED FOR UNKNOWN INDICATION
     Dosage: 75 MG - 200 MCG 1 TAB 2 TIMES A DAY
  8. FOLIC ACID [Concomitant]
     Indication: VITAMIN SUPPLEMENTATION
     Route: 048
  9. SKELAXIN [Concomitant]
     Indication: PRODUCT USED FOR UNKNOWN INDICATION
     Dosage: AS NEEDED
  10. CALCIUM +VIT D [Concomitant]
     Indication: PRODUCT USED FOR UNKNOWN INDICATION
  11. NOVACORT [Concomitant]
     Indication: PRODUCT USED FOR UNKNOWN INDICATION
     Dosage: 2 %- 1% GEL1 APPLICATION 3 TIMES A DAY FOR 7 DAYS
     Route: 061
  12. MEDROL DOSEPACK [Concomitant]
     Indication: PRODUCT USED FOR UNKNOWN INDICATION
     Dosage: 1 AS DIRECTED
  13. ZOLOFT [Concomitant]
     Indication: DEPRESSION
  14. NUCYNTA [Concomitant]
     Indication: PRODUCT USED FOR UNKNOWN INDICATION
     Dosage: AS NEEDED
  15. ULTRAM [Concomitant]
     Indication: PAIN
     Dosage: AS NEEDED
     Dates: start: 201207
  16. SENNA-DOCUSATE [Concomitant]
     Indication: GASTROINTESTINAL DISORDER
     Route: 048
  17. MECLIZINE [Concomitant]
     Indication: VERTIGO
     Route: 048
  18. ARAVA [Concomitant]
     Indication: PRODUCT USED FOR UNKNOWN INDICATION

REACTIONS (25)
  - Device dislocation [Unknown]
  - Humerus fracture [Recovering/Resolving]
  - Spinal fracture [Unknown]
  - Road traffic accident [Unknown]
  - Rib fracture [Unknown]
  - Joint effusion [Unknown]
  - Arthralgia [Unknown]
  - Joint stiffness [Unknown]
  - Joint swelling [Unknown]
  - Fatigue [Unknown]
  - Joint range of motion decreased [Unknown]
  - Pain [Unknown]
  - Osteoarthritis [Unknown]
  - Synovitis [Unknown]
  - Joint effusion [Unknown]
  - Oedema [Unknown]
  - Pulmonary fibrosis [Unknown]
  - Osteoporosis [Unknown]
  - Bronchiectasis [Unknown]
  - Anxiety [Unknown]
  - Mammogram abnormal [Unknown]
  - Porokeratosis [Unknown]
  - Actinic keratosis [Unknown]
  - Vertigo [Unknown]
  - Walking aid user [Unknown]
